FAERS Safety Report 15364625 (Version 1)
Quarter: 2018Q4

REPORT INFORMATION
  Report Type: Spontaneous
  Country: US (occurrence: US)
  Receive Date: 20180910
  Receipt Date: 20180910
  Transmission Date: 20190204
  Serious: Yes (Other)
  Sender: FDA-Public Use
  Company Number: US-JNJFOC-20180839935

PATIENT
  Age: 20 Year
  Sex: Female
  Weight: 90.72 kg

DRUGS (1)
  1. AVEENO ACTIVE NATURALS CLEAR COMPLEXION CLEANSER [Suspect]
     Active Substance: SALICYLIC ACID
     Indication: REMOVAL OF INERT MATTER FROM SKIN OR SUBCUTANEOUS TISSUE
     Dosage: A DIME OR NICKEL SIZE AMOUNT FOR ONE TIME TO CLEAN THE SKIN
     Route: 061
     Dates: start: 20180824, end: 20180824

REACTIONS (2)
  - Burns third degree [Not Recovered/Not Resolved]
  - Application site urticaria [Not Recovered/Not Resolved]

NARRATIVE: CASE EVENT DATE: 20180824
